FAERS Safety Report 12258331 (Version 1)
Quarter: 2016Q2

REPORT INFORMATION
  Report Type: Spontaneous
  Country: FI (occurrence: FI)
  Receive Date: 20160412
  Receipt Date: 20160412
  Transmission Date: 20160815
  Serious: Yes (Life-Threatening)
  Sender: FDA-Public Use
  Company Number: FI-B. BRAUN MEDICAL INC.-1050487

PATIENT
  Age: 66 Year

DRUGS (7)
  1. METRONIDAZOLE. [Suspect]
     Active Substance: METRONIDAZOLE
     Indication: ANTIBIOTIC PROPHYLAXIS
     Route: 042
     Dates: start: 20160316, end: 20160316
  2. MIDAZOLAM [Concomitant]
     Active Substance: MIDAZOLAM\MIDAZOLAM HYDROCHLORIDE
     Dates: start: 20160316
  3. PROPOFOL. [Concomitant]
     Active Substance: PROPOFOL
     Dates: start: 20160316
  4. FENTANYL. [Concomitant]
     Active Substance: FENTANYL
     Dates: start: 20160316
  5. CEFUROXIME. [Suspect]
     Active Substance: CEFUROXIME
     Route: 042
     Dates: start: 20160316, end: 20160316
  6. ROCURONIUM [Concomitant]
     Active Substance: ROCURONIUM BROMIDE
     Dates: start: 20160316
  7. BETAMETHASONE. [Concomitant]
     Active Substance: BETAMETHASONE
     Dates: start: 20160316

REACTIONS (5)
  - Hypersensitivity [None]
  - Hypotension [None]
  - Bronchospasm [None]
  - Hypercapnia [None]
  - Hypoxia [None]
